FAERS Safety Report 18001225 (Version 10)
Quarter: 2020Q4

REPORT INFORMATION
  Report Type: Report from Study
  Country: US (occurrence: US)
  Receive Date: 20200709
  Receipt Date: 20201222
  Transmission Date: 20210113
  Serious: Yes (Other)
  Sender: FDA-Public Use
  Company Number: US-PFIZER INC-2020239211

PATIENT
  Age: 69 Year
  Sex: Female

DRUGS (5)
  1. FASLODEX [Concomitant]
     Active Substance: FULVESTRANT
     Dosage: UNK, MONTHLY
  2. IBRANCE [Suspect]
     Active Substance: PALBOCICLIB
     Dosage: 75 MG, CYCLIC (21 DAYS ON AND 7 DAYS OFF) (ONCE A DAY)/(DAILY DAYS 1-21 OF 28 DAY)
     Route: 048
     Dates: start: 20200903
  3. IBRANCE [Suspect]
     Active Substance: PALBOCICLIB
     Indication: BREAST CANCER FEMALE
     Dosage: 125 MG, CYCLIC (DAILY, DAYS 1-21 OF A 28 DAY CYCLE)
     Route: 048
     Dates: start: 20200615, end: 20200629
  4. IBRANCE [Suspect]
     Active Substance: PALBOCICLIB
     Dosage: 75 MG, CYCLIC (21 DAYS ON AND 7 DAYS OFF) (ONCE A DAY)/(DAILY DAYS 1-21 OF 28 DAY)
     Route: 048
     Dates: start: 20200804, end: 20200817
  5. LETROZOLE. [Concomitant]
     Active Substance: LETROZOLE
     Dosage: UNK

REACTIONS (19)
  - Chills [Unknown]
  - Pyrexia [Unknown]
  - Epistaxis [Unknown]
  - Alopecia [Unknown]
  - Carbohydrate antigen 125 increased [Unknown]
  - Neoplasm progression [Unknown]
  - Headache [Unknown]
  - Dyspnoea [Unknown]
  - Diarrhoea [Unknown]
  - White blood cell count decreased [Recovered/Resolved]
  - Dizziness [Unknown]
  - Feeling abnormal [Unknown]
  - Syncope [Unknown]
  - Platelet count decreased [Recovering/Resolving]
  - Asthenia [Unknown]
  - Arthralgia [Unknown]
  - Fatigue [Not Recovered/Not Resolved]
  - Tumour marker increased [Unknown]
  - Back pain [Unknown]

NARRATIVE: CASE EVENT DATE: 2020
